FAERS Safety Report 10226103 (Version 2)
Quarter: 2014Q2

REPORT INFORMATION
  Report Type: Spontaneous
  Country: US (occurrence: US)
  Receive Date: 20140609
  Receipt Date: 20140609
  Transmission Date: 20141212
  Serious: Yes (Other)
  Sender: FDA-Public Use
  Company Number: PHHY2014US048536

PATIENT
  Sex: Male

DRUGS (6)
  1. LIORESAL INTRATECAL [Suspect]
     Indication: MUSCLE SPASTICITY
     Dosage: 341 UG/DAY
     Route: 037
  2. LIORESAL INTRATECAL [Suspect]
     Dosage: 141.4 UG PER DAY
     Route: 037
  3. BACLOFEN [Suspect]
     Dosage: UNK UKN, UNK
     Route: 048
  4. DIAZEPAM [Suspect]
     Dosage: UNK UKN, UNK
     Route: 048
  5. TIZANIDINE [Suspect]
     Dosage: UNK UKN, UNK
     Route: 048
  6. GABAPENTIN [Suspect]
     Dosage: UNK UKN, UNK
     Route: 048

REACTIONS (6)
  - Fall [Recovered/Resolved]
  - Pruritus [Recovered/Resolved]
  - Anxiety [Recovered/Resolved]
  - Musculoskeletal stiffness [Recovered/Resolved]
  - Muscle spasms [Recovered/Resolved]
  - Drug withdrawal syndrome [Recovered/Resolved]
